FAERS Safety Report 21218198 (Version 1)
Quarter: 2022Q3

REPORT INFORMATION
  Report Type: Spontaneous
  Country: US (occurrence: None)
  Receive Date: 20220816
  Receipt Date: 20220816
  Transmission Date: 20221027
  Serious: No
  Sender: FDA-Public Use
  Company Number: None

PATIENT
  Age: 88 Year
  Sex: Male
  Weight: 80.74 kg

DRUGS (1)
  1. METOPROLOL TARTRATE [Suspect]
     Active Substance: METOPROLOL TARTRATE
     Indication: Heart rate decreased
     Dosage: FREQUENCY : DAILY;?
     Dates: start: 20210421, end: 20220610

REACTIONS (7)
  - Vision blurred [None]
  - Fatigue [None]
  - Depression [None]
  - Urine output decreased [None]
  - Dysphonia [None]
  - Somnolence [None]
  - Depressed mood [None]
